FAERS Safety Report 22370188 (Version 1)
Quarter: 2023Q2

REPORT INFORMATION
  Report Type: Spontaneous
  Country: US (occurrence: US)
  Receive Date: 20230526
  Receipt Date: 20230526
  Transmission Date: 20230722
  Serious: Yes (Hospitalization)
  Sender: FDA-Public Use
  Company Number: US-CIPLA LTD.-2023US02785

PATIENT

DRUGS (1)
  1. BUPROPION [Suspect]
     Active Substance: BUPROPION
     Dosage: UNK
     Route: 048

REACTIONS (7)
  - Disorientation [Unknown]
  - Speech disorder [Unknown]
  - Rapid eye movements sleep abnormal [Unknown]
  - Aphonia [Unknown]
  - Intentional overdose [Unknown]
  - Agitation [Unknown]
  - Tremor [Unknown]
